FAERS Safety Report 8585863-0 (Version None)
Quarter: 2012Q3

REPORT INFORMATION
  Report Type: 
  Country: None (occurrence: None)
  Receive Date: 20120810
  Receipt Date: 20080713
  Transmission Date: 20120928
  Serious: Yes (Other)
  Sender: FDA-Public Use
  Company Number: CO-PFIZER INC-2012194566

PATIENT
  Age: 82 Year
  Sex: Female

DRUGS (9)
  1. OLMESARTAN MEDOXOMIL [Suspect]
     Indication: HYPERTENSION
     Dosage: 20 MG EVERY 12 HOURS
  2. FUROSEMIDE [Concomitant]
     Dosage: 40 MG EVERY 24 HOURS
  3. OMEPRAZOLE [Concomitant]
     Dosage: 20 MG, 1X/DAY
  4. NORVASC [Suspect]
     Indication: HYPERTENSION
     Dosage: 10 MG EVERY 12 HOURS
  5. AMLODIPINE [Concomitant]
     Dosage: 5 MG EVERY 12 HOURS
  6. METOPROLOL TARTRATE [Concomitant]
     Dosage: 50 OR 100 MG EVERY 12 HOURS
  7. LIPITOR [Suspect]
     Indication: DYSLIPIDAEMIA
     Dosage: 20 MG EVERY 24 HOURS
  8. ASPIRIN [Concomitant]
     Dosage: 100 MG EVERY 24 HOURS
  9. HYDROCHLOROTHIAZIDE [Concomitant]
     Dosage: 25 MG EVERY 24 HOURS

REACTIONS (2)
  - RENAL FAILURE CHRONIC [None]
  - ABDOMINAL PAIN UPPER [None]
